FAERS Safety Report 5731383-8 (Version None)
Quarter: 2008Q2

REPORT INFORMATION
  Report Type: 
  Country: None (occurrence: None)
  Receive Date: 20080508
  Receipt Date: 20080501
  Transmission Date: 20081010
  Serious: Yes (Hospitalization)
  Sender: FDA-Public Use
  Company Number: US-JNJFOC-20080203659

PATIENT
  Sex: Male
  Weight: 72.58 kg

DRUGS (3)
  1. DURAGESIC-100 [Suspect]
     Indication: PAIN
     Route: 062
  2. LYRICA [Concomitant]
     Indication: NEUROPATHY PERIPHERAL
     Route: 048
  3. ULTRAM ER [Concomitant]
     Indication: PAIN
     Route: 048

REACTIONS (8)
  - BRONCHITIS [None]
  - DISTURBANCE IN ATTENTION [None]
  - INFLUENZA LIKE ILLNESS [None]
  - LISTLESS [None]
  - NAUSEA [None]
  - NEPHROLITHIASIS [None]
  - RESPIRATORY DISTRESS [None]
  - WEIGHT DECREASED [None]
